FAERS Safety Report 9891474 (Version 2)
Quarter: 2014Q2

REPORT INFORMATION
  Report Type: Spontaneous
  Country: DE (occurrence: DE)
  Receive Date: 20140212
  Receipt Date: 20140508
  Transmission Date: 20141212
  Serious: Yes (Disabling, Other)
  Sender: FDA-Public Use
  Company Number: PHHY2014DE016247

PATIENT
  Age: 61 Year
  Sex: Female
  Weight: 71 kg

DRUGS (7)
  1. AFINITOR [Suspect]
     Indication: BREAST CANCER METASTATIC
     Dosage: 10 MG, PER DAY
     Route: 048
     Dates: start: 201302
  2. AFINITOR [Suspect]
     Dosage: 5 MG PER DAY
     Route: 048
  3. AFINITOR [Suspect]
     Dosage: 10 MG PER DAY
     Route: 048
     Dates: start: 201311
  4. LETROZOLE [Suspect]
     Indication: BREAST CANCER
     Dosage: 2.5 MG, UNK
     Route: 048
     Dates: start: 200704, end: 201008
  5. ZOLEDRONATE [Suspect]
     Indication: METASTASES TO BONE
     Dosage: 4 MG, UNK
     Route: 042
     Dates: start: 200704
  6. EXEMESTANE [Suspect]
     Indication: BREAST CANCER METASTATIC
     Dosage: 25 MG, PER DAY
     Route: 048
     Dates: start: 201008
  7. CAPECITABINE [Suspect]
     Indication: BREAST CANCER METASTATIC
     Dosage: 1000 MG/M2, BID
     Route: 048
     Dates: start: 201108, end: 201302

REACTIONS (12)
  - Infection [Recovering/Resolving]
  - Vocal cord thickening [Recovering/Resolving]
  - Hepatic lesion [Recovering/Resolving]
  - Metastases to spine [Recovering/Resolving]
  - Malignant neoplasm progression [Recovering/Resolving]
  - Metastases to liver [Recovering/Resolving]
  - Palmar-plantar erythrodysaesthesia syndrome [Recovering/Resolving]
  - Type 2 diabetes mellitus [Recovering/Resolving]
  - Blood glucose increased [Recovering/Resolving]
  - Metastases to kidney [Not Recovered/Not Resolved]
  - Bone lesion [Recovering/Resolving]
  - Focal nodular hyperplasia [Recovered/Resolved]
